FAERS Safety Report 5501560-X (Version None)
Quarter: 2007Q4

REPORT INFORMATION
  Report Type: 
  Country: None (occurrence: None)
  Receive Date: 20071030
  Receipt Date: 20071024
  Transmission Date: 20080405
  Serious: No
  Sender: FDA-Public Use
  Company Number: US-BAXTER-2007BH007507

PATIENT
  Age: 65 Year
  Sex: Female

DRUGS (2)
  1. BALANCED SALT SOLUTION [Suspect]
     Indication: CATARACT OPERATION
     Route: 065
     Dates: start: 20070723, end: 20070723
  2. EPINEPHRINE [Suspect]
     Indication: CATARACT OPERATION
     Dosage: DOSE UNIT:UNKNOWN
     Route: 065
     Dates: start: 20070723, end: 20070723

REACTIONS (1)
  - ENDOPHTHALMITIS [None]
